FAERS Safety Report 12159425 (Version 1)
Quarter: 2016Q1

REPORT INFORMATION
  Report Type: Not Available
  Country: None (occurrence: US)
  Receive Date: 20160308
  Receipt Date: 20160308
  Transmission Date: 20160526
  Serious: No
  Sender: FDA-Public Use
  Company Number: US-AKORN-25752

PATIENT
  Sex: Female

DRUGS (1)
  1. LEVALBUTEROL HCI [Suspect]
     Active Substance: LEVALBUTEROL HYDROCHLORIDE

REACTIONS (2)
  - Hypersensitivity [None]
  - Rash [None]
